FAERS Safety Report 15394569 (Version 2)
Quarter: 2018Q4

REPORT INFORMATION
  Report Type: Spontaneous
  Country: FR (occurrence: FR)
  Receive Date: 20180918
  Receipt Date: 20181106
  Transmission Date: 20190204
  Serious: Yes (Hospitalization)
  Sender: FDA-Public Use
  Company Number: FR-SUN PHARMACEUTICAL INDUSTRIES LTD-2018R1-184467

PATIENT

DRUGS (9)
  1. TADALAFIL. [Suspect]
     Active Substance: TADALAFIL
     Indication: BENIGN PROSTATIC HYPERPLASIA
     Dosage: 5 MG, DAILY
     Route: 048
     Dates: end: 20180719
  2. CHONDROSULF 400 MG, GELULE [Concomitant]
     Indication: OSTEOARTHRITIS
     Dosage: 3 DF, DAILY
     Route: 048
     Dates: end: 20180719
  3. NISIS [Suspect]
     Active Substance: VALSARTAN
     Indication: HYPERTENSION
     Dosage: 160 MG, DAILY
     Route: 048
     Dates: start: 201703
  4. CARBAMAZEPINE. [Suspect]
     Active Substance: CARBAMAZEPINE
     Indication: PSYCHOMOTOR SKILLS IMPAIRED
  5. CHONDROSULF 400 MG, G?LULE [Concomitant]
     Indication: OSTEOARTHRITIS
     Route: 048
     Dates: end: 20180719
  6. CARBAMAZEPINE. [Suspect]
     Active Substance: CARBAMAZEPINE
     Indication: PRODUCT USED FOR UNKNOWN INDICATION
     Dosage: 800 MG, DAILY
     Route: 048
     Dates: start: 201703
  7. LOXAPAC, SOLUTION BUVABLE [Concomitant]
     Active Substance: LOXAPINE
     Indication: PSYCHOTIC DISORDER
     Dosage: 5 GTT, DAILY
     Route: 048
     Dates: start: 201703
  8. PERMIXON 160 MG, GELULE [Concomitant]
     Active Substance: HERBALS\SAW PALMETTO
     Indication: BENIGN PROSTATIC HYPERPLASIA
     Dosage: 2 DF, DAILY
     Route: 048
     Dates: start: 201703
  9. PREVISCAN 20 MG, COMPRIME SECABLE [Concomitant]
     Active Substance: FLUINDIONE
     Indication: ATRIAL FIBRILLATION
     Dosage: 1 DF, DAILY
     Route: 048
     Dates: start: 2017

REACTIONS (1)
  - Hyponatraemia [Recovered/Resolved]

NARRATIVE: CASE EVENT DATE: 201806
